FAERS Safety Report 5711326-3 (Version None)
Quarter: 2008Q2

REPORT INFORMATION
  Report Type: 
  Country: None (occurrence: None)
  Receive Date: 20080421
  Receipt Date: 20080411
  Transmission Date: 20081010
  Serious: Yes (Life-Threatening, Hospitalization, Disabling)
  Sender: FDA-Public Use
  Company Number: A0699233A

PATIENT
  Age: 55 Year
  Sex: Female

DRUGS (6)
  1. ADVAIR DISKUS 100/50 [Suspect]
     Indication: ASTHMA
     Route: 055
     Dates: start: 20010101, end: 20040101
  2. SEREVENT [Suspect]
     Indication: ASTHMA
     Route: 055
     Dates: start: 20000101, end: 20040101
  3. FLOVENT [Concomitant]
  4. ACCUPRIL [Concomitant]
  5. ALBUTEROL [Concomitant]
  6. PREVACID [Concomitant]

REACTIONS (6)
  - ASTHMA [None]
  - EMOTIONAL DISTRESS [None]
  - INJURY [None]
  - MENTAL DISORDER [None]
  - PAIN [None]
  - STATUS ASTHMATICUS [None]
